FAERS Safety Report 5099260-6 (Version None)
Quarter: 2006Q3

REPORT INFORMATION
  Report Type: 
  Country: None (occurrence: None)
  Receive Date: 20060731
  Receipt Date: 20060221
  Transmission Date: 20061208
  Serious: Yes (Other)
  Sender: FDA-Public Use
  Company Number: US-2006-003508

PATIENT
  Age: 43 Year
  Sex: Male
  Weight: 86.2 kg

DRUGS (1)
  1. MAGNEVIST [Suspect]
     Indication: NUCLEAR MAGNETIC RESONANCE IMAGING
     Dosage: 10 ML, 20 ML, 1 DOSE, INTRAVENOUS
     Route: 042
     Dates: start: 20060203, end: 20060203

REACTIONS (3)
  - CONVULSION [None]
  - RETCHING [None]
  - VOMITING [None]
